FAERS Safety Report 8742431 (Version 6)
Quarter: 2014Q1

REPORT INFORMATION
  Report Type: Spontaneous
  Country: US (occurrence: US)
  Receive Date: 20120824
  Receipt Date: 20140218
  Transmission Date: 20141002
  Serious: Yes (Other)
  Sender: FDA-Public Use
  Company Number: US-US-EMD SERONO, INC.-7155395

PATIENT
  Sex: Female
  Weight: 78 kg

DRUGS (4)
  1. REBIF [Suspect]
     Indication: MULTIPLE SCLEROSIS
     Route: 058
     Dates: start: 20070827, end: 20090110
  2. REBIF [Suspect]
     Route: 058
     Dates: start: 20090604, end: 201008
  3. REBIF [Suspect]
     Route: 058
     Dates: end: 20110304
  4. REBIF [Suspect]
     Route: 058
     Dates: start: 20120919, end: 20140131

REACTIONS (3)
  - Mycosis fungoides [Recovering/Resolving]
  - Rheumatoid arthritis [Not Recovered/Not Resolved]
  - Osteoarthritis [Not Recovered/Not Resolved]
